FAERS Safety Report 12473161 (Version 1)
Quarter: 2016Q2

REPORT INFORMATION
  Report Type: Spontaneous
  Country: US (occurrence: US)
  Receive Date: 20160616
  Receipt Date: 20160616
  Transmission Date: 20160815
  Serious: No
  Sender: FDA-Public Use
  Company Number: US-BEH-2016070331

PATIENT
  Sex: Male
  Weight: 59.41 kg

DRUGS (33)
  1. FLUOXETINE [Concomitant]
     Active Substance: FLUOXETINE HYDROCHLORIDE
  2. VICODIN ES [Concomitant]
     Active Substance: ACETAMINOPHEN\HYDROCODONE BITARTRATE
  3. CLOTRIMAZOLE. [Concomitant]
     Active Substance: CLOTRIMAZOLE
  4. AZITHROMYCIN ANHYDROUS. [Concomitant]
     Active Substance: AZITHROMYCIN ANHYDROUS
  5. OXYGEN. [Concomitant]
     Active Substance: OXYGEN
  6. FLUCONAZOLE. [Concomitant]
     Active Substance: FLUCONAZOLE
  7. PREDNISONE. [Concomitant]
     Active Substance: PREDNISONE
  8. MUCINEX EXPECTORANT [Concomitant]
  9. SYMBICORT [Concomitant]
     Active Substance: BUDESONIDE\FORMOTEROL FUMARATE DIHYDRATE
  10. PLAQUENIL                          /00072602/ [Concomitant]
     Active Substance: HYDROXYCHLOROQUINE DIPHOSPHATE
  11. ZEMAIRA [Suspect]
     Active Substance: .ALPHA.1-PROTEINASE INHIBITOR HUMAN
     Indication: ALPHA-1 ANTI-TRYPSIN DEFICIENCY
     Dosage: 60 MG/KG, QW
     Route: 042
  12. EPIPEN [Concomitant]
     Active Substance: EPINEPHRINE
  13. DAKINS FULL [Concomitant]
     Active Substance: SODIUM HYPOCHLORITE
  14. MUPIROCIN. [Concomitant]
     Active Substance: MUPIROCIN
  15. VITAMIN D                          /00107901/ [Concomitant]
     Active Substance: ERGOCALCIFEROL
  16. CEFEPIME [Concomitant]
     Active Substance: CEFEPIME HYDROCHLORIDE
  17. LASIX [Concomitant]
     Active Substance: FUROSEMIDE
  18. GABAPENTIN. [Concomitant]
     Active Substance: GABAPENTIN
  19. NASONEX [Concomitant]
     Active Substance: MOMETASONE FUROATE
  20. TRAMADOL. [Concomitant]
     Active Substance: TRAMADOL
  21. LORATADINE. [Concomitant]
     Active Substance: LORATADINE
  22. ACETAMINOPHEN AND CODEINE [Concomitant]
     Active Substance: ACETAMINOPHEN\CODEINE PHOSPHATE
  23. PANTOPRAZOLE [Concomitant]
     Active Substance: PANTOPRAZOLE SODIUM
  24. SPIRIVA [Concomitant]
     Active Substance: TIOTROPIUM BROMIDE MONOHYDRATE
  25. SODIUM CHLORIDE. [Concomitant]
     Active Substance: SODIUM CHLORIDE
  26. ASPIRIN. [Concomitant]
     Active Substance: ASPIRIN
  27. NYSTATIN. [Concomitant]
     Active Substance: NYSTATIN
  28. SILVER NITRATE. [Concomitant]
     Active Substance: SILVER NITRATE
  29. DIPHENHYDRAMINE. [Concomitant]
     Active Substance: DIPHENHYDRAMINE
  30. VOLTAREN [Concomitant]
     Active Substance: DICLOFENAC SODIUM
  31. ALBUTEROL                          /00139501/ [Concomitant]
     Active Substance: ALBUTEROL
  32. LORAZEPAM. [Concomitant]
     Active Substance: LORAZEPAM
  33. METHOTREXATE [Concomitant]
     Active Substance: METHOTREXATE

REACTIONS (1)
  - Feeling hot [Unknown]
